FAERS Safety Report 7769994-0 (Version None)
Quarter: 2011Q3

REPORT INFORMATION
  Report Type: 
  Country: None (occurrence: None)
  Receive Date: 20110922
  Receipt Date: 20090721
  Transmission Date: 20111222
  Serious: Yes (Hospitalization)
  Sender: FDA-Public Use
  Company Number: US-ASTRAZENECA-2008UW08272

PATIENT
  Age: 44 Year
  Sex: Female
  Weight: 118.8 kg

DRUGS (9)
  1. CELEXA [Concomitant]
     Route: 048
     Dates: start: 20020515
  2. SEROQUEL [Suspect]
     Indication: SLEEP DISORDER
     Route: 048
     Dates: start: 20020514
  3. SEROQUEL [Suspect]
     Route: 048
     Dates: start: 20020101, end: 20040101
  4. ATIVAN [Concomitant]
     Route: 048
     Dates: start: 20020515
  5. SINGULAIR [Concomitant]
     Route: 048
     Dates: start: 20020515
  6. HUMIBID LA [Concomitant]
     Route: 048
     Dates: start: 20020515
  7. CLARITIN [Concomitant]
     Dates: start: 20020514
  8. WELLBUTRIN [Concomitant]
     Dates: start: 20020514
  9. SONATA [Concomitant]
     Dates: start: 20020514

REACTIONS (2)
  - SUICIDE ATTEMPT [None]
  - TYPE 2 DIABETES MELLITUS [None]
